FAERS Safety Report 10464320 (Version 2)
Quarter: 2014Q4

REPORT INFORMATION
  Report Type: Spontaneous
  Country: US (occurrence: US)
  Receive Date: 20140919
  Receipt Date: 20141009
  Transmission Date: 20150528
  Serious: No
  Sender: FDA-Public Use
  Company Number: US-PFIZER INC-2014256805

PATIENT
  Age: 67 Year
  Sex: Female
  Weight: 63.49 kg

DRUGS (3)
  1. APRISO [Concomitant]
     Active Substance: MESALAMINE
     Dosage: 1.5 MG, 1X/DAY(4 CAPSULES OF 0.375MG AT A TIME)
  2. ATENOLOL. [Concomitant]
     Active Substance: ATENOLOL
     Dosage: 25 MG, 1X/DAY
  3. EFFEXOR XR [Suspect]
     Active Substance: VENLAFAXINE HYDROCHLORIDE
     Indication: ANTIDEPRESSANT THERAPY
     Dosage: 150 MG, 1X/DAY
     Route: 048
     Dates: start: 2012, end: 20140905

REACTIONS (4)
  - Discomfort [Unknown]
  - Drug withdrawal syndrome [Unknown]
  - Movement disorder [Unknown]
  - Malaise [Unknown]

NARRATIVE: CASE EVENT DATE: 201409
